FAERS Safety Report 5728393-3 (Version None)
Quarter: 2008Q2

REPORT INFORMATION
  Report Type: 
  Country: None (occurrence: None)
  Receive Date: 20080506
  Receipt Date: 20080428
  Transmission Date: 20081010
  Serious: Yes (Other)
  Sender: FDA-Public Use
  Company Number: PHHY2008JP06711

PATIENT
  Age: 59 Year
  Sex: Male

DRUGS (1)
  1. ZADITEN [Suspect]
     Indication: SEASONAL ALLERGY
     Route: 048
     Dates: start: 20080426

REACTIONS (1)
  - HAEMOPTYSIS [None]
